FAERS Safety Report 22037824 (Version 1)
Quarter: 2023Q1

REPORT INFORMATION
  Report Type: Report from Study
  Country: GR (occurrence: GR)
  Receive Date: 20230227
  Receipt Date: 20230227
  Transmission Date: 20230418
  Serious: Yes (Other)
  Sender: FDA-Public Use
  Company Number: GR-TAKEDA-2023TUS019036

PATIENT
  Age: 21 Year
  Sex: Female

DRUGS (1)
  1. HUMAN IMMUNOGLOBULIN G\HYALURONIDASE RECOMBINANT HUMAN [Suspect]
     Active Substance: HUMAN IMMUNOGLOBULIN G\HYALURONIDASE RECOMBINANT HUMAN
     Indication: Immunodeficiency
     Dosage: 1 DOSAGE FORM, Q2WEEKS
     Route: 058
     Dates: start: 2018

REACTIONS (1)
  - Thyroid function test abnormal [Not Recovered/Not Resolved]
